FAERS Safety Report 6669557-4 (Version None)
Quarter: 2010Q2

REPORT INFORMATION
  Report Type: 
  Country: None (occurrence: None)
  Receive Date: 20100406
  Receipt Date: 20100330
  Transmission Date: 20101027
  Serious: Yes (Other)
  Sender: FDA-Public Use
  Company Number: US-PFIZER INC-2010041106

PATIENT
  Age: 50 Year
  Sex: Female

DRUGS (4)
  1. CELEBREX [Interacting]
     Dosage: UNK
  2. DEXLANSOPRAZOLE [Suspect]
     Dosage: UNK
     Route: 048
  3. AVELOX [Interacting]
     Dosage: UNK
     Route: 065
     Dates: start: 20100323
  4. AVALIDE [Concomitant]
     Dosage: UNK

REACTIONS (5)
  - ANAPHYLACTIC REACTION [None]
  - DRUG INTERACTION [None]
  - ERYTHEMA [None]
  - HYPERHIDROSIS [None]
  - PRURITUS [None]
